FAERS Safety Report 17132052 (Version 4)
Quarter: 2020Q1

REPORT INFORMATION
  Report Type: Report from Study
  Country: AU (occurrence: AU)
  Receive Date: 20191210
  Receipt Date: 20200127
  Transmission Date: 20200409
  Serious: Yes (Hospitalization, Other)
  Sender: FDA-Public Use
  Company Number: AU-BEH-2019110197

PATIENT
  Age: 16 Year
  Sex: Female
  Weight: 52 kg

DRUGS (10)
  1. BERINERT [Suspect]
     Active Substance: HUMAN C1-ESTERASE INHIBITOR
     Indication: HEREDITARY ANGIOEDEMA WITH C1 ESTERASE INHIBITOR DEFICIENCY
     Dosage: 1000 INTERNATIONAL UNIT, BIW
     Route: 042
     Dates: start: 20191203
  2. BERINERT [Suspect]
     Active Substance: HUMAN C1-ESTERASE INHIBITOR
     Indication: PROPHYLAXIS
     Dosage: UNK
     Route: 042
     Dates: start: 20191126, end: 20191126
  3. BERINERT [Suspect]
     Active Substance: HUMAN C1-ESTERASE INHIBITOR
     Indication: HEREDITARY ANGIOEDEMA WITH C1 ESTERASE INHIBITOR DEFICIENCY
     Dosage: 1000 INTERNATIONAL UNIT, BIW
     Route: 042
     Dates: start: 20191203
  4. BERINERT [Suspect]
     Active Substance: HUMAN C1-ESTERASE INHIBITOR
     Indication: PROPHYLAXIS
     Dosage: UNK
     Route: 042
     Dates: start: 20191126, end: 20191126
  5. BERINERT [Suspect]
     Active Substance: HUMAN C1-ESTERASE INHIBITOR
     Dosage: 1000 INTERNATIONAL UNIT, BIW
     Route: 042
     Dates: start: 202001
  6. BERINERT [Suspect]
     Active Substance: HUMAN C1-ESTERASE INHIBITOR
     Dosage: UNK
     Route: 042
     Dates: start: 20191212, end: 20191212
  7. BERINERT [Suspect]
     Active Substance: HUMAN C1-ESTERASE INHIBITOR
     Dosage: 1000 INTERNATIONAL UNIT, BIW
     Route: 042
     Dates: start: 202001
  8. BERINERT [Suspect]
     Active Substance: HUMAN C1-ESTERASE INHIBITOR
     Indication: HEREDITARY ANGIOEDEMA
     Dosage: UNK
     Route: 042
     Dates: start: 20191129, end: 20191129
  9. BERINERT [Suspect]
     Active Substance: HUMAN C1-ESTERASE INHIBITOR
     Dosage: UNK
     Route: 042
     Dates: start: 20191212, end: 20191212
  10. BERINERT [Suspect]
     Active Substance: HUMAN C1-ESTERASE INHIBITOR
     Indication: HEREDITARY ANGIOEDEMA
     Dosage: UNK
     Route: 042
     Dates: start: 20191129, end: 20191129

REACTIONS (5)
  - Hereditary angioedema [Recovered/Resolved]
  - Hereditary angioedema [Recovered/Resolved]
  - Product use in unapproved indication [Unknown]
  - No adverse event [Unknown]
  - Hereditary angioedema [Unknown]

NARRATIVE: CASE EVENT DATE: 20191203
